FAERS Safety Report 10147492 (Version 1)
Quarter: 2014Q2

REPORT INFORMATION
  Report Type: Spontaneous
  Country: CN (occurrence: CN)
  Receive Date: 20140501
  Receipt Date: 20140501
  Transmission Date: 20141212
  Serious: Yes (Other)
  Sender: FDA-Public Use
  Company Number: CN-ABBVIE-14P-035-1232563-00

PATIENT
  Age: 45 Year
  Sex: Male

DRUGS (6)
  1. DEPAKINE [Suspect]
     Indication: EPILEPSY
     Route: 041
     Dates: start: 20130811
  2. DEPAKINE [Suspect]
     Route: 045
     Dates: start: 20130814
  3. DEPAKINE [Suspect]
     Route: 045
     Dates: start: 20130830
  4. MEROPENEM [Concomitant]
     Indication: PRODUCT USED FOR UNKNOWN INDICATION
  5. VANCOMYCIN HYDROCHLORIDE [Concomitant]
     Indication: PRODUCT USED FOR UNKNOWN INDICATION
  6. GLUCUROLACTONE [Concomitant]
     Indication: PRODUCT USED FOR UNKNOWN INDICATION

REACTIONS (1)
  - Hepatocellular injury [Recovered/Resolved]
